FAERS Safety Report 25365697 (Version 2)
Quarter: 2025Q2

REPORT INFORMATION
  Report Type: Report from Study
  Country: CA (occurrence: CA)
  Receive Date: 20250527
  Receipt Date: 20250625
  Transmission Date: 20250717
  Serious: Yes (Hospitalization)
  Sender: ABBVIE
  Company Number: CA-ABBVIE-6300638

PATIENT
  Sex: Male

DRUGS (1)
  1. RINVOQ [Suspect]
     Active Substance: UPADACITINIB
     Indication: Rheumatoid arthritis
     Dosage: FROM STRENGTH 15 MILLIGRAM
     Route: 048

REACTIONS (3)
  - Gait disturbance [Recovering/Resolving]
  - Fatigue [Unknown]
  - Sleep deficit [Unknown]
